FAERS Safety Report 19946347 (Version 1)
Quarter: 2021Q4

REPORT INFORMATION
  Report Type: Spontaneous
  Country: DE (occurrence: DE)
  Receive Date: 20211012
  Receipt Date: 20211012
  Transmission Date: 20220303
  Serious: Yes (Hospitalization)
  Sender: FDA-Public Use
  Company Number: DE-ADRED-06529-01

PATIENT
  Age: 80 Year
  Sex: Female

DRUGS (10)
  1. GABAPENTIN [Suspect]
     Active Substance: GABAPENTIN
     Indication: Product used for unknown indication
     Dosage: 300 MILLIGRAM  (300 MG, 1-1-1-0, TABLETTEN   )
     Route: 048
  2. AMITRIPTYLINE [Suspect]
     Active Substance: AMITRIPTYLINE
     Indication: Product used for unknown indication
     Dosage: 10 MILLIGRAM  (10 MG, 0-0-1-0, TABLET)
     Route: 048
  3. BRIVUDINE [Suspect]
     Active Substance: BRIVUDINE
     Indication: Product used for unknown indication
     Dosage: 125 MILLIGRAM  (125 MG, 1-0-0-0, TABLETTEN   )
     Route: 048
  4. MAGNESIUMCITRAT [Concomitant]
     Dosage: 300 MG, 0-0-1-0, CAPSULES
     Route: 048
  5. CHOLECALCIFEROL [Concomitant]
     Active Substance: CHOLECALCIFEROL
     Dosage: 20000 IE, 1-0-0-0, CAPSULE
     Route: 048
  6. ATORVASTATIN [Concomitant]
     Active Substance: ATORVASTATIN
     Dosage: 20 MILLIGRAM  (20 MG, 0-0-1-0, TABLET)
     Route: 048
  7. CARVEDILOL [Concomitant]
     Active Substance: CARVEDILOL
     Dosage: 25 MILLIGRAM (25 MG, 1-0-1-0, TABLETTEN   )
     Route: 048
  8. ASPIRIN [Concomitant]
     Active Substance: ASPIRIN
     Dosage: 100 MILLIGRAM  (100 MG, 1-0-0-0, TABLETTEN   )
     Route: 048
  9. DULAGLUTIDE [Concomitant]
     Active Substance: DULAGLUTIDE
     Dosage: 1 TIME PER WEEK, INJECTION/INFUSION SOLUTION
     Route: 030
  10. AMLODIPINE\HYDROCHLOROTHIAZIDE\OLMESARTAN [Concomitant]
     Active Substance: AMLODIPINE\HYDROCHLOROTHIAZIDE\OLMESARTAN
     Dosage: 5/12.5/40 MG, 1-0-0-0, TABLET
     Route: 048

REACTIONS (2)
  - Syncope [Recovered/Resolved]
  - Nausea [Recovering/Resolving]
